FAERS Safety Report 8973059 (Version 1)
Quarter: 2012Q4

REPORT INFORMATION
  Report Type: 
  Country: US (occurrence: US)
  Receive Date: 20121218
  Receipt Date: 20121218
  Transmission Date: 20130627
  Serious: No
  Sender: FDA-Public Use
  Company Number: US-BRISTOL-MYERS SQUIBB COMPANY-16978306

PATIENT
  Age: 46 Year
  Sex: Female

DRUGS (7)
  1. ABILIFY [Suspect]
  2. AMPYRA [Suspect]
     Dates: start: 2012
  3. OXYBUTYNIN [Concomitant]
  4. IBUPROFEN [Concomitant]
  5. VITAMIN D3 [Concomitant]
  6. AMOXICILLIN [Concomitant]
  7. GILENYA [Concomitant]

REACTIONS (2)
  - Depression [Unknown]
  - Adverse event [Unknown]
